FAERS Safety Report 9640401 (Version 1)
Quarter: 2013Q4

REPORT INFORMATION
  Report Type: Spontaneous
  Country: US (occurrence: None)
  Receive Date: 20131022
  Receipt Date: 20131022
  Transmission Date: 20140711
  Serious: Yes (Other)
  Sender: FDA-Public Use
  Company Number: None

PATIENT
  Age: 77 Year
  Sex: Female
  Weight: 89.81 kg

DRUGS (8)
  1. BENICAR [Suspect]
     Indication: HYPERTENSION
     Dosage: 40MG, 1 PILL A DAY, 1 MOUTH
     Route: 048
     Dates: start: 20130821, end: 20130914
  2. AMLODIPINE [Concomitant]
  3. BESYLATE 10MG [Concomitant]
  4. PRAVASTATIN 40 MG [Concomitant]
  5. HYDROCHLOROT 12.5 MG [Concomitant]
  6. CARVEDILOL 6.25MG [Concomitant]
  7. ASPIRIN 81 MG [Concomitant]
  8. PROTETINE [Concomitant]

REACTIONS (3)
  - Pruritus [None]
  - Ageusia [None]
  - Parosmia [None]
